FAERS Safety Report 5003693-3 (Version None)
Quarter: 2006Q2

REPORT INFORMATION
  Report Type: 
  Country: None (occurrence: None)
  Receive Date: 20060516
  Receipt Date: 20051230
  Transmission Date: 20061013
  Serious: Yes (Hospitalization, Disabling)
  Sender: FDA-Public Use
  Company Number: US-MERCK-0601USA00128

PATIENT
  Age: 63 Year
  Sex: Male
  Weight: 114 kg

DRUGS (2)
  1. VIOXX [Suspect]
     Indication: OSTEOARTHRITIS
     Route: 048
     Dates: start: 20010109, end: 20040930
  2. VIOXX [Suspect]
     Route: 048
     Dates: start: 20010109, end: 20040930

REACTIONS (16)
  - ANGINA UNSTABLE [None]
  - AORTIC ANEURYSM [None]
  - CORONARY ARTERY DISEASE [None]
  - DIABETES MELLITUS NON-INSULIN-DEPENDENT [None]
  - DIVERTICULUM [None]
  - ECZEMA [None]
  - EYE INFECTION [None]
  - FALL [None]
  - GOUT [None]
  - HYPERTENSION [None]
  - INSOMNIA [None]
  - ISCHAEMIC CEREBRAL INFARCTION [None]
  - MUSCLE SPASMS [None]
  - RASH PRURITIC [None]
  - RENAL FAILURE [None]
  - WRIST FRACTURE [None]
